FAERS Safety Report 8141225-1 (Version None)
Quarter: 2012Q1

REPORT INFORMATION
  Report Type: 
  Country: None (occurrence: None)
  Receive Date: 20120216
  Receipt Date: 20120210
  Transmission Date: 20120608
  Serious: Yes (Disabling, Other)
  Sender: FDA-Public Use
  Company Number: GB-SANOFI-AVENTIS-2012SA009157

PATIENT
  Age: 56 Year
  Sex: Female
  Weight: 58 kg

DRUGS (4)
  1. OMEPRAZOLE [Concomitant]
     Indication: DYSPEPSIA
     Dosage: DOSE: 20 (NOS).
     Route: 065
     Dates: start: 20111027
  2. ALCOHOL [Suspect]
     Route: 065
  3. DIAZEPAM [Concomitant]
     Indication: ANXIETY
     Dosage: DOSE: 5 (NOS). AS REQUIRED.
     Route: 065
     Dates: start: 20000910
  4. ZOLPIDEM [Suspect]
     Indication: INSOMNIA
     Dosage: DOSE: 10 (NOS).
     Route: 065
     Dates: start: 20110301, end: 20120124

REACTIONS (5)
  - AGITATION [None]
  - HOSTILITY [None]
  - DISORIENTATION [None]
  - SOMNAMBULISM [None]
  - AMNESIA [None]
